FAERS Safety Report 9636386 (Version 1)
Quarter: 2013Q4

REPORT INFORMATION
  Report Type: Spontaneous
  Country: JP (occurrence: None)
  Receive Date: 20131017
  Receipt Date: 20131017
  Transmission Date: 20140711
  Serious: Yes (Other)
  Sender: FDA-Public Use
  Company Number: SYM-2013-11457

PATIENT
  Sex: 0

DRUGS (1)
  1. HYDROCORTISONE [Suspect]
     Indication: ADRENOCORTICAL STEROID THERAPY

REACTIONS (4)
  - Hyperthyroidism [None]
  - Post procedural complication [None]
  - Blood cortisol decreased [None]
  - Blood thyroid stimulating hormone abnormal [None]
